FAERS Safety Report 6654351-0 (Version None)
Quarter: 2010Q1

REPORT INFORMATION
  Report Type: 
  Country: None (occurrence: None)
  Receive Date: 20100326
  Receipt Date: 20100318
  Transmission Date: 20100710
  Serious: Yes (Other)
  Sender: FDA-Public Use
  Company Number: JP-PFIZER INC-2010026863

PATIENT
  Age: 81 Year
  Sex: Female
  Weight: 44 kg

DRUGS (7)
  1. CELECOX [Suspect]
     Indication: PAIN
     Dosage: 200 MG, 1X/DAY
     Route: 048
     Dates: start: 20100123, end: 20100212
  2. IRBESARTAN [Suspect]
     Indication: HYPERTENSION
     Dosage: 50 MG, 1X/DAY
     Route: 048
     Dates: start: 20091217
  3. BENZBROMARONE [Concomitant]
     Indication: HYPERURICAEMIA
     Dosage: UNK
     Route: 048
  4. AMLODIPINE BESILATE [Concomitant]
     Indication: HYPERTENSION
     Dosage: 5 MG, 1X/DAY
     Route: 048
  5. CRESTOR [Concomitant]
     Indication: HYPERLIPIDAEMIA
     Dosage: UNK
     Route: 048
  6. PREDNISOLONE [Concomitant]
     Indication: RHEUMATOID ARTHRITIS
     Dosage: UNK
  7. PILSICAINIDE HYDROCHLORIDE [Concomitant]
     Indication: ARRHYTHMIA
     Dosage: UNK
     Route: 048

REACTIONS (7)
  - ASTHENIA [None]
  - C-REACTIVE PROTEIN INCREASED [None]
  - DECREASED APPETITE [None]
  - DEHYDRATION [None]
  - DIARRHOEA [None]
  - INFECTION [None]
  - VOMITING [None]
